FAERS Safety Report 9948485 (Version 1)
Quarter: 2014Q1

REPORT INFORMATION
  Report Type: Report from Study
  Country: US (occurrence: US)
  Receive Date: 20140303
  Receipt Date: 20140303
  Transmission Date: 20141002
  Serious: No
  Sender: FDA-Public Use
  Company Number: US-ABBVIE-13P-163-1059498-00

PATIENT
  Age: 57 Year
  Sex: Female
  Weight: 90.8 kg

DRUGS (6)
  1. HUMIRA [Suspect]
     Indication: PSORIATIC ARTHROPATHY
     Dates: start: 2006, end: 201208
  2. HUMIRA [Suspect]
     Indication: RHEUMATOID ARTHRITIS
     Dates: start: 201209
  3. INDERAL LA [Concomitant]
     Indication: HYPERTENSION
  4. CELEBREX [Concomitant]
     Indication: PAIN
  5. TRIAMETERENE [Concomitant]
     Indication: FLUID RETENTION
  6. SYNTHROID [Concomitant]
     Indication: HYPOTHYROIDISM

REACTIONS (1)
  - Psoriasis [Not Recovered/Not Resolved]
